FAERS Safety Report 9902520 (Version 1)
Quarter: 2014Q1

REPORT INFORMATION
  Report Type: Spontaneous
  Country: US (occurrence: US)
  Receive Date: 20140217
  Receipt Date: 20140217
  Transmission Date: 20141002
  Serious: No
  Sender: FDA-Public Use
  Company Number: US-GILEAD-2011-0043876

PATIENT
  Age: 73 Year
  Sex: Female

DRUGS (1)
  1. LETAIRIS [Suspect]
     Indication: PRODUCT USED FOR UNKNOWN INDICATION
     Route: 048
     Dates: start: 20100831

REACTIONS (9)
  - Chest pain [Unknown]
  - Chest discomfort [Unknown]
  - Pyrexia [Unknown]
  - Hypotension [Unknown]
  - Vomiting [Unknown]
  - Headache [Unknown]
  - Flushing [Unknown]
  - Dyspnoea [Unknown]
  - Angioedema [Unknown]
